FAERS Safety Report 7406469-2 (Version None)
Quarter: 2011Q2

REPORT INFORMATION
  Report Type: 
  Country: None (occurrence: None)
  Receive Date: 20110405
  Receipt Date: 20110405
  Transmission Date: 20111010
  Serious: Yes (Life-Threatening, Hospitalization, Other)
  Sender: FDA-Public Use
  Company Number: None

PATIENT
  Age: 49 Year
  Sex: Female
  Weight: 57.6068 kg

DRUGS (4)
  1. DILAUDID [Suspect]
     Dosage: 2/ HR IV BOLUS
     Route: 040
     Dates: start: 20090811, end: 20090811
  2. REGLAN [Suspect]
     Indication: NAUSEA
     Dosage: 20 MG IV BOLUS
     Route: 040
     Dates: start: 20090811, end: 20090811
  3. REGLAN [Suspect]
     Indication: PAIN
     Dosage: 20 MG IV BOLUS
     Route: 040
     Dates: start: 20090811, end: 20090811
  4. REGLAN [Suspect]
     Indication: VOMITING
     Dosage: 20 MG IV BOLUS
     Route: 040
     Dates: start: 20090811, end: 20090811

REACTIONS (4)
  - ACIDOSIS [None]
  - SMALL INTESTINAL OBSTRUCTION [None]
  - GASTROINTESTINAL NECROSIS [None]
  - SEPSIS [None]
